FAERS Safety Report 16202850 (Version 2)
Quarter: 2019Q2

REPORT INFORMATION
  Report Type: Spontaneous
  Country: US (occurrence: US)
  Receive Date: 20190416
  Receipt Date: 20190614
  Transmission Date: 20190711
  Serious: No
  Sender: FDA-Public Use
  Company Number: US-PFIZER INC-2019162342

PATIENT
  Age: 73 Year
  Sex: Female

DRUGS (5)
  1. XELODA [Concomitant]
     Active Substance: CAPECITABINE
     Dosage: 1500 MG, 2X/DAY (BID)
     Dates: start: 2019
  2. FASLODEX [Concomitant]
     Active Substance: FULVESTRANT
     Dosage: UNK, MONTHLY
     Route: 030
  3. IBRANCE [Suspect]
     Active Substance: PALBOCICLIB
     Dosage: 125 MG, CYCLIC (21 DAYS ON 7 OFF)
     Dates: start: 201803, end: 201903
  4. IBRANCE [Suspect]
     Active Substance: PALBOCICLIB
     Indication: BREAST CANCER METASTATIC
     Dosage: UNK
     Dates: start: 201802
  5. XGEVA [Concomitant]
     Active Substance: DENOSUMAB
     Dosage: UNK, MONTHLY
     Route: 058

REACTIONS (2)
  - Neoplasm progression [Unknown]
  - Musculoskeletal chest pain [Unknown]
